FAERS Safety Report 14918738 (Version 5)
Quarter: 2020Q2

REPORT INFORMATION
  Report Type: Spontaneous
  Country: US (occurrence: US)
  Receive Date: 20180521
  Receipt Date: 20200612
  Transmission Date: 20200713
  Serious: Yes (Hospitalization)
  Sender: FDA-Public Use
  Company Number: US-PFIZER INC-2018204536

PATIENT
  Age: 55 Year
  Sex: Male
  Weight: 94 kg

DRUGS (4)
  1. SUTENT [Suspect]
     Active Substance: SUNITINIB MALATE
     Indication: GASTROINTESTINAL STROMAL TUMOUR
     Dosage: 50 MG, CYCLIC, (ONCE A DAY FOR 28 DAYS ON AND THEN OFF FOR AN UNKNOWN NUMBER OF DAYS)
     Route: 048
     Dates: start: 201703
  2. LYNPARZA [Concomitant]
     Active Substance: OLAPARIB
     Indication: PROSTATE CANCER
     Dosage: 400 MG, 2X/DAY, ^50MG CAPSULE, TAKES 8 CAPSULES TWICE^
     Route: 048
     Dates: start: 201705
  3. LYRICA [Concomitant]
     Active Substance: PREGABALIN
     Indication: NEURALGIA
     Dosage: 1 DF, 2X/DAY
     Route: 048
  4. SUTENT [Suspect]
     Active Substance: SUNITINIB MALATE
     Indication: PROSTATE CANCER

REACTIONS (2)
  - Cerebrovascular accident [Recovered/Resolved with Sequelae]
  - Transient ischaemic attack [Recovered/Resolved with Sequelae]

NARRATIVE: CASE EVENT DATE: 20180402
